FAERS Safety Report 6100622-6 (Version None)
Quarter: 2009Q1

REPORT INFORMATION
  Report Type: 
  Country: None (occurrence: None)
  Receive Date: 20090223
  Receipt Date: 20090214
  Transmission Date: 20090719
  Serious: Yes (Hospitalization)
  Sender: FDA-Public Use
  Company Number: CHPA2009US04469

PATIENT
  Sex: Female

DRUGS (1)
  1. BENEFIBER UNKNOWN (NCH) (UNKNOWN) UNKNOWN [Suspect]
     Dosage: 2 TO 3 TIMES A DAY, ORAL
     Route: 048
     Dates: start: 20070101

REACTIONS (2)
  - NEPHROLITHIASIS [None]
  - PAIN [None]
